FAERS Safety Report 8192534-1 (Version None)
Quarter: 2012Q1

REPORT INFORMATION
  Report Type: 
  Country: None (occurrence: None)
  Receive Date: 20120308
  Receipt Date: 20120227
  Transmission Date: 20120608
  Serious: No
  Sender: FDA-Public Use
  Company Number: US-BIOGENIDEC-2012BI007359

PATIENT
  Age: 55 Year
  Sex: Female

DRUGS (3)
  1. AVONEX [Suspect]
     Route: 030
     Dates: start: 20051021, end: 20060929
  2. AVONEX [Suspect]
     Indication: MULTIPLE SCLEROSIS
     Route: 030
     Dates: start: 20010105, end: 20010905
  3. AVONEX [Suspect]
     Route: 030
     Dates: start: 20101013

REACTIONS (9)
  - GENERAL PHYSICAL HEALTH DETERIORATION [None]
  - MULTIPLE SCLEROSIS RELAPSE [None]
  - PAIN IN EXTREMITY [None]
  - CONTUSION [None]
  - BLINDNESS UNILATERAL [None]
  - INJECTION SITE HAEMORRHAGE [None]
  - RASH ERYTHEMATOUS [None]
  - MALAISE [None]
  - INFLUENZA LIKE ILLNESS [None]
